FAERS Safety Report 12300968 (Version 1)
Quarter: 2016Q2

REPORT INFORMATION
  Report Type: Report from Study
  Country: BR (occurrence: BR)
  Receive Date: 20160425
  Receipt Date: 20160425
  Transmission Date: 20160815
  Serious: No
  Sender: FDA-Public Use
  Company Number: PHHY2015BR141697

PATIENT
  Sex: Male
  Weight: 99 kg

DRUGS (1)
  1. TASIGNA [Suspect]
     Active Substance: NILOTINIB
     Indication: CHRONIC MYELOID LEUKAEMIA
     Dosage: 2 DF BID (2 IN THE MORNING AND 2 AT NIGHT)
     Route: 048
     Dates: start: 20130313

REACTIONS (15)
  - Visual impairment [Unknown]
  - Aggression [Recovering/Resolving]
  - Lacrimation increased [Recovering/Resolving]
  - Hypoaesthesia [Unknown]
  - Balance disorder [Not Recovered/Not Resolved]
  - Mobility decreased [Unknown]
  - Arthralgia [Unknown]
  - Toothache [Recovering/Resolving]
  - Tinnitus [Unknown]
  - Abdominal pain upper [Unknown]
  - Skin exfoliation [Unknown]
  - Irritability [Unknown]
  - Headache [Unknown]
  - Pain in extremity [Unknown]
  - Dizziness [Unknown]
